FAERS Safety Report 24155421 (Version 1)
Quarter: 2024Q3

REPORT INFORMATION
  Report Type: Report from Study
  Country: US (occurrence: US)
  Receive Date: 20240731
  Receipt Date: 20240731
  Transmission Date: 20241017
  Serious: Yes (Death, Other)
  Sender: TAKEDA
  Company Number: US-TAKEDA-2024TUS076541

PATIENT
  Age: 85 Year
  Sex: Female

DRUGS (1)
  1. FRUQUINTINIB [Suspect]
     Active Substance: FRUQUINTINIB
     Indication: Blood disorder
     Dosage: 5 MILLIGRAM
     Route: 048
     Dates: end: 20240718

REACTIONS (1)
  - Death [Fatal]

NARRATIVE: CASE EVENT DATE: 20240718
